FAERS Safety Report 18064490 (Version 3)
Quarter: 2022Q1

REPORT INFORMATION
  Report Type: Spontaneous
  Country: US (occurrence: US)
  Receive Date: 20200724
  Receipt Date: 20220322
  Transmission Date: 20220423
  Serious: Yes (Hospitalization, Other)
  Sender: FDA-Public Use
  Company Number: US-JAZZ-2020-US-008291

PATIENT
  Age: 14 Year
  Sex: Male
  Weight: 119.3 kg

DRUGS (21)
  1. ERWINAZE [Suspect]
     Active Substance: ASPARAGINASE ERWINIA CHRYSANTHEMI
     Indication: Acute lymphocytic leukaemia
     Dosage: DOSE: 100 MILLIGRAM, FREQUENCY: BID (DAYS 1-14, 29-42DOSE: 37.5 MILLIGRAM, FREQUENCY: Q6H (DAYS 3-4D
     Route: 030
     Dates: start: 20200608, end: 20200608
  2. ERWINAZE [Suspect]
     Active Substance: ASPARAGINASE ERWINIA CHRYSANTHEMI
     Dosage: UNKNOWN DOSE
     Route: 065
     Dates: start: 20200610, end: 202006
  3. ERWINAZE [Suspect]
     Active Substance: ASPARAGINASE ERWINIA CHRYSANTHEMI
     Dosage: UNKNOWN DOSE
     Route: 065
     Dates: start: 20200612, end: 202006
  4. CYCLOPHOSPHAMIDE [Suspect]
     Active Substance: CYCLOPHOSPHAMIDE
     Indication: Acute lymphocytic leukaemia
     Dosage: 2400 MILLIGRAM (DAYS 1, 29)
     Route: 042
     Dates: start: 20200409
  5. CYCLOPHOSPHAMIDE [Suspect]
     Active Substance: CYCLOPHOSPHAMIDE
     Dosage: DOSE: 100 MILLIGRAM, FREQUENCY: BID (DAYS 1-14, 29-42DOSE: 37.5 MILLIGRAM, FREQUENCY: Q6H (DAYS 3-4D
     Dates: start: 20200409
  6. CYTARABINE [Suspect]
     Active Substance: CYTARABINE
     Indication: Acute lymphocytic leukaemia
     Dosage: DOSE: 100 MILLIGRAM, FREQUENCY: BID (DAYS 1-14, 29-42DOSE: 37.5 MILLIGRAM, FREQUENCY: Q6H (DAYS 3-4D
     Route: 042
     Dates: start: 20200409
  7. MERCAPTOPURINE [Suspect]
     Active Substance: MERCAPTOPURINE
     Indication: Acute lymphocytic leukaemia
     Dosage: 150 MILLIGRAM
     Route: 048
     Dates: start: 20200409
  8. MERCAPTOPURINE [Suspect]
     Active Substance: MERCAPTOPURINE
     Dosage: 50 MILLIGRAM (DAY 1-4)
     Route: 048
     Dates: start: 20200701
  9. MERCAPTOPURINE [Suspect]
     Active Substance: MERCAPTOPURINE
     Dosage: DOSE: 100 MILLIGRAM, FREQUENCY: BID (DAYS 1-14, 29-42DOSE: 37.5 MILLIGRAM, FREQUENCY: Q6H (DAYS 3-4D
     Dates: start: 20200409
  10. MERCAPTOPURINE [Suspect]
     Active Substance: MERCAPTOPURINE
     Dosage: DOSE: 100 MILLIGRAM, FREQUENCY: BID (DAYS 1-14, 29-42DOSE: 37.5 MILLIGRAM, FREQUENCY: Q6H (DAYS 3-4D
     Dates: start: 20200701
  11. METHOTREXATE [Suspect]
     Active Substance: METHOTREXATE
     Indication: Acute lymphocytic leukaemia
     Dosage: 15 MILLIGRAM
     Route: 037
     Dates: start: 20200409
  12. METHOTREXATE [Suspect]
     Active Substance: METHOTREXATE
     Dosage: 12230 MILLIGRAM (DAY1)
     Route: 042
     Dates: start: 20200701
  13. VINCRISTINE [Suspect]
     Active Substance: VINCRISTINE
     Indication: Acute lymphocytic leukaemia
     Dosage: 2 MILLIGRAM (DAYS15, 22,43,50)
     Route: 042
     Dates: start: 20200701
  14. VINCRISTINE [Suspect]
     Active Substance: VINCRISTINE
     Dosage: DOSE: 100 MILLIGRAM, FREQUENCY: BID (DAYS 1-14, 29-42DOSE: 37.5 MILLIGRAM, FREQUENCY: Q6H (DAYS 3-4D
     Route: 042
     Dates: start: 20200423
  15. VINCRISTINE [Suspect]
     Active Substance: VINCRISTINE
     Dosage: DOSE: 100 MILLIGRAM, FREQUENCY: BID (DAYS 1-14, 29-42DOSE: 37.5 MILLIGRAM, FREQUENCY: Q6H (DAYS 3-4D
     Dates: start: 20200701
  16. ONDANSETRON [Suspect]
     Active Substance: ONDANSETRON
     Dosage: DOSE: 100 MILLIGRAM, FREQUENCY: BID (DAYS 1-14, 29-42DOSE: 37.5 MILLIGRAM, FREQUENCY: Q6H (DAYS 3-4D
     Dates: start: 20200605, end: 20200617
  17. PEGASPARGASE [Suspect]
     Active Substance: PEGASPARGASE
     Indication: Acute lymphocytic leukaemia
     Dosage: 300 INTERNATIONAL UNIT
     Route: 042
     Dates: start: 20200423
  18. ASPARAGINASE [Suspect]
     Active Substance: ASPARAGINASE
     Indication: Acute lymphocytic leukaemia
     Dosage: 60000 INTERNATIONAL UNIT
     Route: 030
     Dates: start: 20200608
  19. LEUCOVORIN [Suspect]
     Active Substance: LEUCOVORIN
     Indication: Acute lymphocytic leukaemia
     Dosage: 37.5 MILLIGRAM, Q6H
     Route: 048
     Dates: start: 20200703
  20. DOCONEXENT\ICOSAPENT [Concomitant]
     Active Substance: DOCONEXENT\ICOSAPENT
     Dosage: UNK
     Dates: start: 20200529
  21. GEMFIBROZIL [Concomitant]
     Active Substance: GEMFIBROZIL
     Dosage: DOSE: 100 MILLIGRAM, FREQUENCY: BID (DAYS 1-14, 29-42DOSE: 37.5 MILLIGRAM, FREQUENCY: Q6H (DAYS 3-4D
     Dates: start: 20200605, end: 20200713

REACTIONS (2)
  - Drug clearance decreased [Recovered/Resolved]
  - Toxicity to various agents [Recovered/Resolved]

NARRATIVE: CASE EVENT DATE: 20200608
